FAERS Safety Report 5127127-3 (Version None)
Quarter: 2006Q4

REPORT INFORMATION
  Report Type: 
  Country: None (occurrence: None)
  Receive Date: 20061013
  Receipt Date: 20061003
  Transmission Date: 20070319
  Serious: Yes (Other)
  Sender: FDA-Public Use
  Company Number: 2006AC01851

PATIENT
  Age: 46 Year
  Sex: Female

DRUGS (1)
  1. ROSUVASTATIN [Suspect]

REACTIONS (1)
  - AUTOIMMUNE HEPATITIS [None]
